FAERS Safety Report 19046015 (Version 1)
Quarter: 2021Q1

REPORT INFORMATION
  Report Type: Report from Study
  Country: US (occurrence: US)
  Receive Date: 20210322
  Receipt Date: 20210322
  Transmission Date: 20210420
  Serious: Yes (Death)
  Sender: FDA-Public Use
  Company Number: US-TEVA-2021-US-1894775

PATIENT

DRUGS (7)
  1. PEGFILGRASTIM [Suspect]
     Active Substance: PEGFILGRASTIM
     Indication: PRODUCT USED FOR UNKNOWN INDICATION
     Route: 065
  2. DOXORUBICIN [Suspect]
     Active Substance: DOXORUBICIN
     Indication: DIFFUSE LARGE B-CELL LYMPHOMA
     Dosage: AS PART OF BV?R MINICHOP REGIMEN; SCHEDULED TO RECEIVE SIX CYCLES OF THREE?WEEKS EACH
     Route: 065
  3. CYCLOPHOSPHAMIDE. [Suspect]
     Active Substance: CYCLOPHOSPHAMIDE
     Indication: DIFFUSE LARGE B-CELL LYMPHOMA
     Dosage: AS PART OF BV?R MINICHOP REGIMEN; SCHEDULED TO RECEIVE SIX CYCLES OF THREE?WEEKS EACH
     Route: 065
  4. BRENTUXIMAB VEDOTIN [Suspect]
     Active Substance: BRENTUXIMAB VEDOTIN
     Indication: DIFFUSE LARGE B-CELL LYMPHOMA
     Dosage: AS PART OF BV?R MINICHOP REGIMEN; FOR THE FIRST CYCLE, PATIENT RECEIVED BRENTUXIMAB VEDOTIN AND P...
     Route: 065
  5. VINCRISTINE [Suspect]
     Active Substance: VINCRISTINE
     Indication: DIFFUSE LARGE B-CELL LYMPHOMA
     Dosage: AS PART OF BV?R MINICHOP REGIMEN; SCHEDULED TO RECEIVE SIX CYCLES OF THREE?WEEKS EACH
     Route: 065
  6. PREDNISONE. [Suspect]
     Active Substance: PREDNISONE
     Indication: DIFFUSE LARGE B-CELL LYMPHOMA
     Dosage: ON DAYS 1?5 AS PART OF BV?R MINICHOP REGIMEN; FOR THE FIRST CYCLE, PATIENT RECEIVED BRENTUXIMAB V...
     Route: 065
  7. RITUXIMAB. [Suspect]
     Active Substance: RITUXIMAB
     Indication: DIFFUSE LARGE B-CELL LYMPHOMA
     Dosage: AS PART OF BV?R MINICHOP REGIMEN; SCHEDULED TO RECEIVE SIX CYCLES OF THREE?WEEKS EACH
     Route: 065

REACTIONS (1)
  - Myocardial infarction [Fatal]
